FAERS Safety Report 7669892-7 (Version None)
Quarter: 2011Q3

REPORT INFORMATION
  Report Type: 
  Country: None (occurrence: None)
  Receive Date: 20110808
  Receipt Date: 20110726
  Transmission Date: 20111222
  Serious: Yes (Other)
  Sender: FDA-Public Use
  Company Number: PHHY2011US56297

PATIENT
  Sex: Female
  Weight: 98 kg

DRUGS (1)
  1. GLEEVEC [Suspect]
     Indication: CHRONIC MYELOID LEUKAEMIA
     Dosage: 400 MG, DAILY
     Route: 048
     Dates: start: 20090801

REACTIONS (4)
  - HEPATIC STEATOSIS [None]
  - MUSCLE SPASMS [None]
  - PAIN [None]
  - WEIGHT INCREASED [None]
